FAERS Safety Report 21451058 (Version 1)
Quarter: 2022Q4

REPORT INFORMATION
  Report Type: Spontaneous
  Country: US (occurrence: US)
  Receive Date: 20221013
  Receipt Date: 20221013
  Transmission Date: 20230112
  Serious: Yes (Other)
  Sender: FDA-Public Use
  Company Number: US-MYLANLABS-2022M1112881

PATIENT
  Sex: Female

DRUGS (5)
  1. PREDNISONE [Suspect]
     Active Substance: PREDNISONE
     Indication: Cystoid macular oedema
     Dosage: 40 MILLIGRAM, QD
     Route: 048
  2. MYCOPHENOLATE MOFETIL [Suspect]
     Active Substance: MYCOPHENOLATE MOFETIL
     Indication: Retinal vasculitis
     Dosage: 1 GRAM, BID
     Route: 065
  3. MYCOPHENOLATE MOFETIL [Suspect]
     Active Substance: MYCOPHENOLATE MOFETIL
     Dosage: 1.5 GRAM, BID
     Route: 065
  4. EYLEA [Suspect]
     Active Substance: AFLIBERCEPT
     Indication: Cystoid macular oedema
     Dosage: 2 MG/0.05 ML
  5. OZURDEX [Concomitant]
     Active Substance: DEXAMETHASONE
     Indication: Angiopathy
     Dosage: 0.7 MILLIGRAM

REACTIONS (4)
  - Cystoid macular oedema [Recovered/Resolved]
  - Condition aggravated [Recovered/Resolved]
  - Rebound effect [Recovered/Resolved]
  - Drug ineffective [Unknown]
